FAERS Safety Report 20482942 (Version 2)
Quarter: 2022Q1

REPORT INFORMATION
  Report Type: Spontaneous
  Country: US (occurrence: US)
  Receive Date: 20220217
  Receipt Date: 20220220
  Transmission Date: 20220423
  Serious: No
  Sender: FDA-Public Use
  Company Number: US-GLAXOSMITHKLINE-US2022023132

PATIENT
  Sex: Female

DRUGS (2)
  1. ZEJULA [Suspect]
     Active Substance: NIRAPARIB
     Indication: Malignant peritoneal neoplasm
     Dosage: 100 MG, QD
     Route: 048
     Dates: start: 20220114
  2. ZEJULA [Suspect]
     Active Substance: NIRAPARIB
     Dosage: 100 MG, QD

REACTIONS (9)
  - Dry mouth [Unknown]
  - Constipation [Unknown]
  - Fatigue [Unknown]
  - Cough [Unknown]
  - Crying [Unknown]
  - Dizziness [Unknown]
  - Decreased gait velocity [Unknown]
  - Eructation [Unknown]
  - Feeling abnormal [Unknown]
